FAERS Safety Report 6548385-4 (Version None)
Quarter: 2010Q1

REPORT INFORMATION
  Report Type: 
  Country: None (occurrence: None)
  Receive Date: 20100124
  Receipt Date: 20090608
  Transmission Date: 20100710
  Serious: No
  Sender: FDA-Public Use
  Company Number: US-ALLERGAN-0907972US

PATIENT
  Sex: Female

DRUGS (4)
  1. RESTASIS [Suspect]
     Indication: DRY EYE
     Dosage: 1 GTT, BID
     Route: 047
     Dates: start: 20090603
  2. OPTIVE [Concomitant]
     Indication: DRY EYE
     Dosage: UNK, PRN
     Route: 047
  3. CLEAR EYES [Concomitant]
     Indication: DRY EYE
     Dosage: UNK, PRN
     Route: 047
  4. ZYRTEC [Concomitant]
     Indication: SEASONAL ALLERGY
     Dosage: UNK, QD
     Route: 048

REACTIONS (2)
  - EYE PAIN [None]
  - EYE PRURITUS [None]
